FAERS Safety Report 8684035 (Version 2)
Quarter: 2013Q4

REPORT INFORMATION
  Report Type: Spontaneous
  Country: US (occurrence: US)
  Receive Date: 20120726
  Receipt Date: 20131101
  Transmission Date: 20140711
  Serious: No
  Sender: FDA-Public Use
  Company Number: US-009507513-1207USA003435

PATIENT
  Sex: Male

DRUGS (3)
  1. INTEGRILIN [Suspect]
     Indication: PERCUTANEOUS CORONARY INTERVENTION
     Dosage: UNK, UNKNOWN
     Route: 042
  2. ASPIRIN [Concomitant]
     Dosage: UNK, UNKNOWN
  3. HEPARIN [Concomitant]
     Dosage: UNK, UNKNOWN

REACTIONS (1)
  - Haemorrhage [Recovered/Resolved]
